FAERS Safety Report 5658460-4 (Version None)
Quarter: 2008Q1

REPORT INFORMATION
  Report Type: 
  Country: None (occurrence: None)
  Receive Date: 20080310
  Receipt Date: 20070222
  Transmission Date: 20080703
  Serious: No
  Sender: FDA-Public Use
  Company Number: US-BAYER-200710588BCC

PATIENT
  Age: 66 Year
  Sex: Female

DRUGS (4)
  1. ALEVE [Suspect]
     Indication: ARTHRALGIA
     Dosage: TOTAL DAILY DOSE: 220 MG  UNIT DOSE: 220 MG
     Route: 048
     Dates: start: 20060101
  2. MECLIZINE [Concomitant]
  3. COUMADIN [Concomitant]
  4. TOPROL-XL [Concomitant]

REACTIONS (1)
  - ARTHRALGIA [None]
